FAERS Safety Report 19355365 (Version 2)
Quarter: 2021Q2

REPORT INFORMATION
  Report Type: Report from Study
  Country: US (occurrence: US)
  Receive Date: 20210531
  Receipt Date: 20210616
  Transmission Date: 20210717
  Serious: Yes (Hospitalization, Other)
  Sender: FDA-Public Use
  Company Number: US-TAKEDA-US202011912

PATIENT
  Sex: Female

DRUGS (2)
  1. CUVITRU [Suspect]
     Active Substance: HUMAN IMMUNOGLOBULIN G
     Indication: SELECTIVE IGA IMMUNODEFICIENCY
     Dosage: 12 GRAM, 1X/WEEK
     Route: 065
  2. HUMAN NORMAL IMMUNOGLOBULIN [Suspect]
     Active Substance: HUMAN IMMUNOGLOBULIN G
     Indication: SELECTIVE IGA IMMUNODEFICIENCY
     Dosage: UNK
     Route: 042

REACTIONS (11)
  - Systemic lupus erythematosus [Unknown]
  - Seizure [Recovering/Resolving]
  - Infection [Recovering/Resolving]
  - Infectious mononucleosis [Recovering/Resolving]
  - Inappropriate schedule of product administration [Unknown]
  - Renal impairment [Recovering/Resolving]
  - Herpes zoster [Recovering/Resolving]
  - Scar [Recovering/Resolving]
  - Respiratory syncytial virus infection [Unknown]
  - Urinary tract infection [Recovering/Resolving]
  - Injection site mass [Recovering/Resolving]

NARRATIVE: CASE EVENT DATE: 2019
